FAERS Safety Report 16771617 (Version 1)
Quarter: 2019Q3

REPORT INFORMATION
  Report Type: Spontaneous
  Country: US (occurrence: US)
  Receive Date: 20190904
  Receipt Date: 20190904
  Transmission Date: 20191005
  Serious: Yes (Other)
  Sender: FDA-Public Use
  Company Number: US-PFIZER INC-2019381476

PATIENT
  Age: 71 Year
  Sex: Female

DRUGS (2)
  1. CEFTRIAXONE SODIUM. [Suspect]
     Active Substance: CEFTRIAXONE SODIUM
     Dosage: UNK
  2. CEFALEXIN [Suspect]
     Active Substance: CEPHALEXIN
     Dosage: UNK

REACTIONS (2)
  - Anaphylactic reaction [Unknown]
  - Drug hypersensitivity [Unknown]
